FAERS Safety Report 11835486 (Version 1)
Quarter: 2015Q4

REPORT INFORMATION
  Report Type: Spontaneous
  Country: None (occurrence: None)
  Receive Date: 20151214
  Receipt Date: 20151214
  Transmission Date: 20160305
  Serious: No
  Sender: FDA-Public Use
  Company Number: None

PATIENT
  Age: 52 Year
  Sex: Male

DRUGS (3)
  1. BYDUREON [Concomitant]
     Active Substance: EXENATIDE
  2. TOUJEO [Concomitant]
     Active Substance: INSULIN GLARGINE
  3. METFORMIN UNKNOWN UNKNOWN [Suspect]
     Active Substance: METFORMIN HYDROCHLORIDE

REACTIONS (2)
  - Drug ineffective [None]
  - Blood glucose increased [None]

NARRATIVE: CASE EVENT DATE: 20151211
